FAERS Safety Report 8356164-0 (Version None)
Quarter: 2012Q2

REPORT INFORMATION
  Report Type: 
  Country: None (occurrence: None)
  Receive Date: 20120514
  Receipt Date: 20120502
  Transmission Date: 20120825
  Serious: Yes (Other)
  Sender: FDA-Public Use
  Company Number: US-SANOFI-AVENTIS-2012SA031194

PATIENT
  Age: 74 Year
  Sex: Male

DRUGS (8)
  1. METOPROLOL TARTRATE [Concomitant]
  2. PLAVIX [Suspect]
     Indication: STENT PLACEMENT
     Route: 048
     Dates: start: 20110923
  3. EZETIMIBE [Concomitant]
  4. ATORVASTATIN CALCIUM [Concomitant]
  5. LEVOTHYROXINE SODIUM [Concomitant]
  6. AMIODARONE HCL [Concomitant]
  7. LOSARTAN POTASSIUM [Concomitant]
  8. ASPIRIN [Concomitant]

REACTIONS (1)
  - RECTAL FISSURE [None]
